FAERS Safety Report 11198330 (Version 3)
Quarter: 2015Q4

REPORT INFORMATION
  Report Type: Spontaneous
  Country: US (occurrence: US)
  Receive Date: 20150618
  Receipt Date: 20151207
  Transmission Date: 20160304
  Serious: No
  Sender: FDA-Public Use
  Company Number: US-ROCHE-1596136

PATIENT
  Age: 70 Year
  Sex: Female
  Weight: 62.2 kg

DRUGS (46)
  1. LABETALOL [Concomitant]
     Active Substance: LABETALOL\LABETALOL HYDROCHLORIDE
     Route: 048
     Dates: start: 20110825
  2. VENTOLIN [Concomitant]
     Active Substance: ALBUTEROL SULFATE
     Dosage: 90 MCG?2-3 INHALATIONS , AEROSOL INHALER
     Route: 065
     Dates: start: 20120320
  3. PREDNISONE. [Concomitant]
     Active Substance: PREDNISONE
     Route: 048
     Dates: start: 20141204
  4. CELEBREX [Concomitant]
     Active Substance: CELECOXIB
     Route: 048
     Dates: start: 20141204
  5. ENBREL [Concomitant]
     Active Substance: ETANERCEPT
     Dosage: 50 MG/ML (0.98 ML)
     Route: 058
  6. ENBREL [Concomitant]
     Active Substance: ETANERCEPT
     Dosage: PEN INJECTOR?50 MG/ML (0.98 ML)
     Route: 058
     Dates: start: 20130325
  7. FOLIC ACID. [Concomitant]
     Active Substance: FOLIC ACID
     Route: 048
     Dates: start: 20121025
  8. FOLIC ACID. [Concomitant]
     Active Substance: FOLIC ACID
     Route: 048
     Dates: start: 20130111
  9. PREDNISONE. [Concomitant]
     Active Substance: PREDNISONE
     Dosage: MAX 4/DAY
     Route: 048
     Dates: start: 20121211
  10. FOLIC ACID. [Concomitant]
     Active Substance: FOLIC ACID
     Route: 048
     Dates: start: 20101110
  11. FOLIC ACID. [Concomitant]
     Active Substance: FOLIC ACID
     Route: 048
     Dates: start: 20111118
  12. MELOXICAM. [Concomitant]
     Active Substance: MELOXICAM
     Route: 048
     Dates: start: 20120320
  13. INSULIN [Concomitant]
     Active Substance: INSULIN NOS
     Dosage: 3 REFILLS
     Route: 065
     Dates: start: 20130916
  14. PRAVASTATIN [Concomitant]
     Active Substance: PRAVASTATIN\PRAVASTATIN SODIUM
     Route: 048
     Dates: start: 20120320
  15. PREDNISONE. [Concomitant]
     Active Substance: PREDNISONE
     Dosage: MAX 4/DAY
     Route: 048
     Dates: start: 20140919
  16. ENBREL [Concomitant]
     Active Substance: ETANERCEPT
     Dosage: PEN INJECTOR?50 MG/ML (0.98 ML)
     Route: 058
     Dates: start: 20121102
  17. ACTEMRA [Suspect]
     Active Substance: TOCILIZUMAB
     Indication: RHEUMATOID ARTHRITIS
     Dosage: STRENGTH: 162/.9ML
     Route: 058
     Dates: start: 20150130
  18. SYMBICORT [Concomitant]
     Active Substance: BUDESONIDE\FORMOTEROL FUMARATE DIHYDRATE
     Dosage: 160-4.5 MCG?TWO INHALATIONS, AEROSOL INHALER
     Route: 065
     Dates: start: 20120320
  19. ENBREL [Concomitant]
     Active Substance: ETANERCEPT
     Dosage: 50MG/ML (0.98 ML)?PEN INJECTOR
     Route: 058
     Dates: start: 20110909
  20. ENBREL [Concomitant]
     Active Substance: ETANERCEPT
     Route: 058
     Dates: start: 20130116
  21. FELODIPINE. [Concomitant]
     Active Substance: FELODIPINE
     Dosage: EXTENDED RELEASE
     Route: 048
     Dates: start: 20110825
  22. POTASSIUM CHLORIDE. [Concomitant]
     Active Substance: POTASSIUM CHLORIDE
     Dosage: EXTENDED RELEASE
     Route: 048
     Dates: start: 20111025
  23. ACTEMRA [Suspect]
     Active Substance: TOCILIZUMAB
     Dosage: 162 MG/0.9 ML
     Route: 058
     Dates: start: 20140917
  24. ACTEMRA [Suspect]
     Active Substance: TOCILIZUMAB
     Route: 058
     Dates: start: 20150404
  25. TRAMADOL. [Concomitant]
     Active Substance: TRAMADOL
     Dosage: PRN (AS NEEDED)?MAX 6/DAY
     Route: 048
     Dates: start: 20120713
  26. FOLIC ACID. [Concomitant]
     Active Substance: FOLIC ACID
     Route: 048
     Dates: start: 20150406
  27. ACTEMRA [Suspect]
     Active Substance: TOCILIZUMAB
     Dosage: 0.9 ML
     Route: 058
     Dates: start: 20150414
  28. LOSARTAN. [Concomitant]
     Active Substance: LOSARTAN
     Route: 048
     Dates: start: 20110825
  29. PREMPRO [Concomitant]
     Active Substance: ESTROGENS, CONJUGATED\MEDROXYPROGESTERONE ACETATE
     Dosage: 0.3-1.5 MG
     Route: 048
     Dates: start: 20110825
  30. PREDNISONE. [Concomitant]
     Active Substance: PREDNISONE
     Dosage: MAXIMUM 4/DAY?PRN
     Route: 048
     Dates: start: 20121112
  31. PREDNISONE. [Concomitant]
     Active Substance: PREDNISONE
     Dosage: 5 MG UPTO 7 MG?PRN
     Route: 065
     Dates: start: 20111025
  32. FOLIC ACID. [Concomitant]
     Active Substance: FOLIC ACID
     Route: 048
     Dates: start: 20140115
  33. METHOTREXATE SODIUM. [Concomitant]
     Active Substance: METHOTREXATE SODIUM
     Dosage: 25 MG/ML
     Route: 058
     Dates: start: 20101110
  34. METHOTREXATE SODIUM. [Concomitant]
     Active Substance: METHOTREXATE SODIUM
     Dosage: 25 MG/ML
     Route: 058
     Dates: start: 20120320
  35. PENNSAID [Concomitant]
     Active Substance: DICLOFENAC SODIUM
     Dosage: DROPS
     Route: 061
     Dates: start: 20141022
  36. PENNSAID [Concomitant]
     Active Substance: DICLOFENAC SODIUM
     Dosage: DROPS?PRN (AS NEEDED)
     Route: 061
     Dates: start: 20121112
  37. TERAZOSIN [Concomitant]
     Active Substance: TERAZOSIN\TERAZOSIN HYDROCHLORIDE
     Route: 048
     Dates: start: 20120320
  38. ENBREL [Concomitant]
     Active Substance: ETANERCEPT
     Dosage: PEN INJECTOR?50 MG/ML (0.98 ML)
     Route: 058
     Dates: start: 20131029
  39. METHOTREXATE SODIUM. [Concomitant]
     Active Substance: METHOTREXATE SODIUM
     Dosage: 25 MG/ML
     Route: 058
     Dates: start: 20130916
  40. KLONOPIN [Suspect]
     Active Substance: CLONAZEPAM
     Indication: PRODUCT USED FOR UNKNOWN INDICATION
     Route: 048
     Dates: start: 20150520
  41. KLONOPIN [Suspect]
     Active Substance: CLONAZEPAM
     Route: 065
     Dates: start: 201502
  42. PREDNISONE. [Concomitant]
     Active Substance: PREDNISONE
     Dosage: PRN
     Route: 048
     Dates: start: 20121112
  43. ENBREL [Concomitant]
     Active Substance: ETANERCEPT
     Dosage: 50 MG/ML?PEN INJECTOR
     Route: 058
     Dates: start: 20110520
  44. ENBREL [Concomitant]
     Active Substance: ETANERCEPT
     Dosage: 50 MG/ML
     Route: 065
     Dates: start: 20140729
  45. ENBREL [Concomitant]
     Active Substance: ETANERCEPT
     Dosage: PEN INJECTOR?50 MG/ML (0.98 ML)
     Route: 058
     Dates: start: 20130802
  46. FOLIC ACID. [Concomitant]
     Active Substance: FOLIC ACID
     Route: 048
     Dates: start: 20120320

REACTIONS (1)
  - Fatigue [Not Recovered/Not Resolved]

NARRATIVE: CASE EVENT DATE: 201502
